FAERS Safety Report 5440457-0 (Version None)
Quarter: 2007Q3

REPORT INFORMATION
  Report Type: 
  Country: None (occurrence: None)
  Receive Date: 20070831
  Receipt Date: 20070820
  Transmission Date: 20080115
  Serious: Yes (Hospitalization, Other)
  Sender: FDA-Public Use
  Company Number: US-ELI_LILLY_AND_COMPANY-US200708005691

PATIENT
  Age: 74 Year
  Sex: Female
  Weight: 95 kg

DRUGS (12)
  1. GEMZAR [Suspect]
     Indication: BREAST CANCER METASTATIC
     Dosage: 3000 MG, OTHER
     Route: 042
     Dates: start: 20070601
  2. TAXOL [Concomitant]
     Indication: BREAST CANCER METASTATIC
     Dosage: 180 MG, OTHER
     Route: 042
     Dates: start: 20070601
  3. AMBIEN [Concomitant]
     Indication: SLEEP DISORDER
     Dosage: 10 MG, AS NEEDED
     Dates: start: 20060412
  4. NEXIUM [Concomitant]
     Indication: GASTROOESOPHAGEAL REFLUX DISEASE
     Dosage: 40 MG, DAILY (1/D)
     Dates: start: 20070601
  5. PEPCID [Concomitant]
     Indication: GASTROOESOPHAGEAL REFLUX DISEASE
  6. COUMADIN [Concomitant]
     Indication: THROMBOSIS
     Dosage: 5 MG, DAILY (1/D)
     Dates: start: 20070605
  7. PROCHLORPERAZINE [Concomitant]
     Indication: NAUSEA
     Dosage: 10 MG, OTHER
     Dates: start: 20070606
  8. DOXYCYCLINE [Concomitant]
     Indication: NASAL ULCER
     Dosage: 100 MG, 2/D
     Dates: start: 20070607
  9. PHENYLEPHRINE [Concomitant]
     Indication: MULTIPLE ALLERGIES
     Dosage: 1 D/F, 2/D
     Route: 048
  10. BENADRYL [Concomitant]
     Indication: PROPHYLAXIS
     Dosage: UNK, UNK
     Dates: start: 20070406
  11. DECADRON                                /CAN/ [Concomitant]
     Indication: PROPHYLAXIS
     Dosage: UNK, UNK
     Dates: start: 20070405
  12. DILTIAZEM [Concomitant]
     Indication: HYPERTENSION
     Dosage: UNK, UNK
     Dates: start: 20070615

REACTIONS (6)
  - AORTIC VALVE DISEASE MIXED [None]
  - ATRIAL FIBRILLATION [None]
  - CARDIOMEGALY [None]
  - INTERNATIONAL NORMALISED RATIO INCREASED [None]
  - PULMONARY OEDEMA [None]
  - VENTRICULAR HYPERTROPHY [None]
